FAERS Safety Report 10172575 (Version 1)
Quarter: 2014Q2

REPORT INFORMATION
  Report Type: Spontaneous
  Country: CA (occurrence: CA)
  Receive Date: 20140515
  Receipt Date: 20140515
  Transmission Date: 20141212
  Serious: Yes (Hospitalization)
  Sender: FDA-Public Use
  Company Number: CA-009507513-1405CAN006430

PATIENT
  Sex: Male

DRUGS (5)
  1. TEMODAL [Suspect]
     Indication: GLIOBLASTOMA MULTIFORME
     Dosage: 5 MG, UNK
     Route: 048
  2. TEMODAL [Suspect]
     Dosage: 20 MG, UNK
     Route: 048
  3. TEMODAL [Suspect]
     Dosage: 100 MG, UNK
     Route: 048
  4. TEMODAL [Suspect]
     Dosage: 140 MG, UNK
     Route: 048
  5. TEMODAL [Suspect]
     Dosage: 250 MG, UNK
     Route: 048

REACTIONS (2)
  - Cough [Unknown]
  - Chest discomfort [Unknown]
